FAERS Safety Report 8794386 (Version 1)
Quarter: 2012Q4

REPORT INFORMATION
  Report Type: 
  Country: NL (occurrence: NL)
  Receive Date: 20120917
  Receipt Date: 20120917
  Transmission Date: 20130627
  Serious: Yes (Other)
  Sender: FDA-Public Use
  Company Number: NL-MYLANLABS-2012S1018427

PATIENT
  Age: 39 Year
  Sex: Male
  Weight: 93 kg

DRUGS (1)
  1. TERBINAFINE [Suspect]
     Indication: ONYCHOMYCOSIS
     Dosage: 1 maal daags 250 mg
     Route: 048
     Dates: start: 20120610, end: 20120623

REACTIONS (2)
  - Depressed mood [Recovered/Resolved]
  - Anxiety [Recovered/Resolved]
